FAERS Safety Report 7420771-X (Version None)
Quarter: 2011Q2

REPORT INFORMATION
  Report Type: 
  Country: None (occurrence: None)
  Receive Date: 20110418
  Receipt Date: 20110407
  Transmission Date: 20111010
  Serious: Yes (Other)
  Sender: FDA-Public Use
  Company Number: CA-ASTRAZENECA-2010SE42618

PATIENT
  Age: 60 Year
  Sex: Female
  Weight: 47.6 kg

DRUGS (2)
  1. CRESTOR [Suspect]
     Indication: HYPERLIPIDAEMIA
     Route: 048
     Dates: start: 20010315
  2. PREMARIN [Concomitant]
     Indication: MENOPAUSE
     Dosage: 0.625 STARTED YEARS AGO

REACTIONS (3)
  - BLOOD GLUCOSE FLUCTUATION [None]
  - WEIGHT DECREASED [None]
  - DIABETES MELLITUS [None]
